FAERS Safety Report 8955123 (Version 3)
Quarter: 2013Q1

REPORT INFORMATION
  Report Type: Spontaneous
  Country: US (occurrence: US)
  Receive Date: 20121210
  Receipt Date: 20130225
  Transmission Date: 20140127
  Serious: Yes (Hospitalization, Other)
  Sender: FDA-Public Use
  Company Number: US-BIOGENIDEC-2012BI057305

PATIENT
  Sex: Female

DRUGS (2)
  1. TYSABRI [Suspect]
     Indication: MULTIPLE SCLEROSIS
     Route: 042
     Dates: start: 20080326, end: 20091125
  2. TYSABRI [Suspect]
     Indication: MULTIPLE SCLEROSIS
     Route: 042
     Dates: start: 20100923, end: 201211

REACTIONS (5)
  - Large intestine perforation [Recovered/Resolved]
  - Paralysis [Recovered/Resolved]
  - Perforation bile duct [Unknown]
  - Peroneal nerve palsy [Not Recovered/Not Resolved]
  - Pain in extremity [Recovered/Resolved]
